FAERS Safety Report 6589318-4 (Version None)
Quarter: 2010Q1

REPORT INFORMATION
  Report Type: 
  Country: None (occurrence: None)
  Receive Date: 20100218
  Receipt Date: 20100209
  Transmission Date: 20100710
  Serious: Yes (Other)
  Sender: FDA-Public Use
  Company Number: US-PFIZER INC-2010017134

PATIENT
  Sex: Female

DRUGS (2)
  1. LIPITOR [Suspect]
     Dosage: UNK
  2. FOSAMAX [Suspect]
     Dosage: UNK

REACTIONS (10)
  - CATHETER PLACEMENT [None]
  - CHOLECYSTECTOMY [None]
  - DRUG INEFFECTIVE [None]
  - GOUTY ARTHRITIS [None]
  - HYPERSENSITIVITY [None]
  - KNEE OPERATION [None]
  - MUSCLE SPASMS [None]
  - OESOPHAGEAL DISORDER [None]
  - STRESS [None]
  - THYROID OPERATION [None]
